FAERS Safety Report 21823394 (Version 1)
Quarter: 2023Q1

REPORT INFORMATION
  Report Type: Spontaneous
  Country: IT (occurrence: IT)
  Receive Date: 20230105
  Receipt Date: 20230105
  Transmission Date: 20230417
  Serious: Yes (Hospitalization)
  Sender: FDA-Public Use
  Company Number: None

PATIENT
  Age: 13 Year
  Sex: Male

DRUGS (1)
  1. FLUTICASONE PROPIONATE\SALMETEROL XINAFOATE [Suspect]
     Active Substance: FLUTICASONE PROPIONATE\SALMETEROL XINAFOATE
     Indication: Bronchospasm
     Dosage: 25 MICROGRAM, Q8H
     Route: 065
     Dates: start: 20221108, end: 20221108

REACTIONS (7)
  - Electrocardiogram abnormal [Recovering/Resolving]
  - Chest pain [Recovering/Resolving]
  - Mydriasis [Recovering/Resolving]
  - Bronchospasm [Recovering/Resolving]
  - Tachycardia [Recovering/Resolving]
  - Tremor [Recovering/Resolving]
  - Accidental overdose [Recovering/Resolving]

NARRATIVE: CASE EVENT DATE: 20221108
